FAERS Safety Report 13825956 (Version 1)
Quarter: 2017Q3

REPORT INFORMATION
  Report Type: Spontaneous
  Country: US (occurrence: US)
  Receive Date: 20170802
  Receipt Date: 20170802
  Transmission Date: 20171127
  Serious: Yes (Other)
  Sender: FDA-Public Use
  Company Number: US-BAYER-2017-146782

PATIENT
  Age: 21 Year
  Sex: Female
  Weight: 97.42 kg

DRUGS (5)
  1. ACETAMINOPHEN. [Concomitant]
     Active Substance: ACETAMINOPHEN
  2. IBUPROFENE [Suspect]
     Active Substance: IBUPROFEN
  3. DOXYCYCLINE HYCLATE. [Concomitant]
     Active Substance: DOXYCYCLINE HYCLATE
     Route: 048
  4. SKYLA [Suspect]
     Active Substance: LEVONORGESTREL
     Dosage: 14 MCG/24HR, CONT
     Route: 015
     Dates: start: 20140207
  5. SKYLA [Suspect]
     Active Substance: LEVONORGESTREL
     Dosage: 14 MCG/24HR, CONT
     Route: 015
     Dates: start: 20170112

REACTIONS (9)
  - Device issue [None]
  - Drug ineffective [None]
  - Abdominal pain lower [None]
  - Dysmenorrhoea [None]
  - Pregnancy with contraceptive device [None]
  - Genital haemorrhage [None]
  - Genital haemorrhage [Recovered/Resolved]
  - Vaginal discharge [None]
  - Vaginal haemorrhage [None]

NARRATIVE: CASE EVENT DATE: 20170319
